FAERS Safety Report 22058747 (Version 1)
Quarter: 2023Q1

REPORT INFORMATION
  Report Type: Spontaneous
  Country: FR (occurrence: FR)
  Receive Date: 20230303
  Receipt Date: 20230303
  Transmission Date: 20230418
  Serious: Yes (Death, Other)
  Sender: FDA-Public Use
  Company Number: FR-JNJFOC-20230255640

PATIENT
  Age: 78 Year
  Sex: Male

DRUGS (2)
  1. TECLISTAMAB [Suspect]
     Active Substance: TECLISTAMAB
     Indication: Product used for unknown indication
     Route: 065
     Dates: start: 202212
  2. TECLISTAMAB [Suspect]
     Active Substance: TECLISTAMAB
     Route: 065

REACTIONS (3)
  - Plasma cell myeloma [Fatal]
  - Neurotoxicity [Recovered/Resolved]
  - VIth nerve disorder [Recovered/Resolved]
